FAERS Safety Report 8076438-0 (Version None)
Quarter: 2012Q1

REPORT INFORMATION
  Report Type: 
  Country: None (occurrence: None)
  Receive Date: 20120127
  Receipt Date: 20120116
  Transmission Date: 20120608
  Serious: Yes (Hospitalization)
  Sender: FDA-Public Use
  Company Number: DE-ROCHE-718461

PATIENT
  Age: 69 Year
  Sex: Female

DRUGS (9)
  1. METHOTREXATE [Suspect]
     Indication: RHEUMATOID ARTHRITIS
     Route: 048
  2. LEVOTHYROXINE SODIUM [Concomitant]
  3. MABTHERA [Suspect]
     Indication: RHEUMATOID ARTHRITIS
     Dosage: LAST ADMINISTRATION PRIOR TO THE EVENT: 30-AUG-2010 DOSE: 4000 MG
     Route: 042
  4. LANSOPRAZOLE [Concomitant]
  5. RASILEZ [Concomitant]
  6. FOLSAN [Concomitant]
     Dates: start: 20080901
  7. PREDNISOLONE [Concomitant]
  8. PLAVIX [Concomitant]
  9. DEKRISTOL [Concomitant]

REACTIONS (3)
  - STENT PLACEMENT [None]
  - ANAL PROLAPSE [None]
  - RECTOCELE [None]
